FAERS Safety Report 5157692-1 (Version None)
Quarter: 2006Q4

REPORT INFORMATION
  Report Type: 
  Country: None (occurrence: None)
  Receive Date: 20061115
  Receipt Date: 20061102
  Transmission Date: 20070319
  Serious: Yes (Hospitalization)
  Sender: FDA-Public Use
  Company Number: SPV1-2006-01587

PATIENT
  Age: 17 Year
  Sex: Male

DRUGS (5)
  1. PENTASA [Suspect]
     Indication: COLITIS ULCERATIVE
     Dosage: SEE IMAGE
     Dates: start: 20060613, end: 20060627
  2. PENTASA [Suspect]
     Indication: COLITIS ULCERATIVE
     Dosage: SEE IMAGE
     Dates: start: 20060704, end: 20060717
  3. CEFDINIR [Concomitant]
  4. CEFAZOLIN /00010902/ (CEFALOTIN SODIUM) [Concomitant]
  5. FAMOTIDINE [Concomitant]

REACTIONS (8)
  - COLITIS ULCERATIVE [None]
  - DISEASE RECURRENCE [None]
  - DISSEMINATED INTRAVASCULAR COAGULATION [None]
  - HAEMATOMA [None]
  - HAEMORRHAGE SUBCUTANEOUS [None]
  - LABORATORY TEST ABNORMAL [None]
  - SKIN GRAFT [None]
  - SKIN NECROSIS [None]
